FAERS Safety Report 13194905 (Version 3)
Quarter: 2017Q2

REPORT INFORMATION
  Report Type: Report from Study
  Country: None (occurrence: CA)
  Receive Date: 20170207
  Receipt Date: 20170521
  Transmission Date: 20170830
  Serious: Yes (Hospitalization)
  Sender: FDA-Public Use
  Company Number: CA-ABBVIE-17K-028-1862286-00

PATIENT
  Sex: Male

DRUGS (2)
  1. HUMIRA [Suspect]
     Active Substance: ADALIMUMAB
     Route: 058
     Dates: start: 20170216
  2. HUMIRA [Suspect]
     Active Substance: ADALIMUMAB
     Indication: PSORIASIS
     Route: 058
     Dates: start: 20100923, end: 20170116

REACTIONS (6)
  - Disorientation [Recovered/Resolved]
  - Dizziness [Not Recovered/Not Resolved]
  - Fall [Recovered/Resolved]
  - Head injury [Recovering/Resolving]
  - Asthenia [Not Recovered/Not Resolved]
  - Abasia [Recovering/Resolving]

NARRATIVE: CASE EVENT DATE: 2017
